FAERS Safety Report 5110805-X (Version None)
Quarter: 2006Q3

REPORT INFORMATION
  Report Type: 
  Country: None (occurrence: None)
  Receive Date: 20060913
  Receipt Date: 20060831
  Transmission Date: 20061208
  Serious: Yes (Hospitalization)
  Sender: FDA-Public Use
  Company Number: 2006BH012933

PATIENT
  Age: 66 Year
  Sex: Male
  Weight: 68.5 kg

DRUGS (2)
  1. PROTENATE [Suspect]
     Indication: PROPHYLAXIS
     Dosage: 250 ML; IV
     Route: 042
     Dates: start: 20060805
  2. SALINE [Concomitant]

REACTIONS (4)
  - ANAPHYLACTIC SHOCK [None]
  - ILL-DEFINED DISORDER [None]
  - PROCEDURAL COMPLICATION [None]
  - THROMBOSIS IN DEVICE [None]
